FAERS Safety Report 18041937 (Version 1)
Quarter: 2020Q3

REPORT INFORMATION
  Report Type: Spontaneous
  Country: US (occurrence: US)
  Receive Date: 20200720
  Receipt Date: 20200720
  Transmission Date: 20201103
  Serious: No
  Sender: FDA-Public Use
  Company Number: US-CIPLA LTD.-2020US04543

PATIENT

DRUGS (9)
  1. RITONAVIR. [Suspect]
     Active Substance: RITONAVIR
     Indication: ANTIRETROVIRAL THERAPY
     Dosage: 1 (UNITS UNSPECIFIED), 1 COURSE, SECOND TRIMESTER FROM 17 WEEKS
     Route: 048
  2. DOLUTEGRAVIR [Suspect]
     Active Substance: DOLUTEGRAVIR
     Indication: ANTIRETROVIRAL THERAPY
     Dosage: 1 (UNITS UNSPECIFIED), 1 COURSE, SECOND TRIMESTER FROM 17 WEEKS
     Route: 048
  3. DARUNAVIR [Suspect]
     Active Substance: DARUNAVIR
     Indication: ANTIRETROVIRAL THERAPY
     Dosage: 1 (UNITS UNSPECIFIED), 1 COURSE
     Route: 048
  4. ATAZANAVIR. [Suspect]
     Active Substance: ATAZANAVIR
     Dosage: 400 (UNITS UNSPECIFIED), 2 COURSE, THIRD TRIMESTER FROM 36 WEEKS
     Route: 048
  5. EMTRICITABINE/TENOFOVIR [Suspect]
     Active Substance: EMTRICITABINE\TENOFOVIR
     Indication: ANTIRETROVIRAL THERAPY
     Dosage: 1 (UNITS UNSPECIFIED), 1 COURSE, SECOND TRIMESTER FROM 17 WEEKS
     Route: 048
  6. ZIDOVUDINE. [Suspect]
     Active Substance: ZIDOVUDINE
     Indication: ANTIRETROVIRAL THERAPY
     Dosage: 2 (UNITS UNSPECIFIED), 1 COURSE, THIRD TRIMSTER IN 41TH WEEK FOR {1 WEEK
     Route: 042
  7. ZIDOVUDINE. [Suspect]
     Active Substance: ZIDOVUDINE
     Dosage: 1 (UNITS UNSPECIFIED), 2 COURSE, THIRD TRIMSTER IN 41TH WEEK FOR {1 WEEK
     Route: 042
  8. COBICISTAT;ELVITEGRAVIR;EMTRICITABINE;TENOFOVIR ALAFENAMIDE [Suspect]
     Active Substance: COBICISTAT\ELVITEGRAVIR\EMTRICITABINE\TENOFOVIR ALAFENAMIDE FUMARATE
     Indication: ANTIRETROVIRAL THERAPY
     Dosage: 1 (UNITS UNSPECIFIED),1 COURSE
     Route: 048
  9. ATAZANAVIR. [Suspect]
     Active Substance: ATAZANAVIR
     Indication: ANTIRETROVIRAL THERAPY
     Dosage: 300 (UNITS UNSPECIFIED), 1 COURSE, SECOND TRIMESTER FROM 17 TO 36 WEEKS
     Route: 048

REACTIONS (2)
  - Exposure during pregnancy [Unknown]
  - No adverse event [Unknown]
